FAERS Safety Report 4999837-X (Version None)
Quarter: 2006Q2

REPORT INFORMATION
  Report Type: 
  Country: None (occurrence: None)
  Receive Date: 20060509
  Receipt Date: 20060425
  Transmission Date: 20061013
  Serious: Yes (Hospitalization)
  Sender: FDA-Public Use
  Company Number: 06IL000790

PATIENT
  Age: 38 Year
  Sex: Male

DRUGS (1)
  1. LITHIUM CARBONATE [Suspect]
     Indication: BIPOLAR DISORDER

REACTIONS (1)
  - THERAPY NON-RESPONDER [None]
